FAERS Safety Report 20922509 (Version 1)
Quarter: 2022Q2

REPORT INFORMATION
  Report Type: Spontaneous
  Country: AU (occurrence: AU)
  Receive Date: 20220607
  Receipt Date: 20220607
  Transmission Date: 20220721
  Serious: Yes (Hospitalization)
  Sender: FDA-Public Use
  Company Number: AU-drreddys-LIT/AUS/22/0150820

PATIENT
  Sex: Female

DRUGS (11)
  1. PREGABALIN [Suspect]
     Active Substance: PREGABALIN
     Indication: Cutaneous calcification
     Dosage: PREGABALIN 150MG IN THE MORNING AND 300MG AT NIGHT
  2. SODIUM THIOSULFATE [Suspect]
     Active Substance: SODIUM THIOSULFATE
     Indication: Cutaneous calcification
     Route: 061
  3. TACROLIMUS [Suspect]
     Active Substance: TACROLIMUS
     Indication: Cutaneous calcification
     Route: 061
  4. CLOBETASOL [Suspect]
     Active Substance: CLOBETASOL
     Indication: Cutaneous calcification
     Route: 061
  5. PREDNISOLONE [Suspect]
     Active Substance: PREDNISOLONE
     Indication: Cutaneous calcification
     Route: 048
  6. PREDNISOLONE [Suspect]
     Active Substance: PREDNISOLONE
     Dosage: HIGHEST DOSE OF 50MG THAT WAS WEANED OVER 2?3 WEEKS
     Route: 048
  7. DILTIAZEM [Suspect]
     Active Substance: DILTIAZEM
     Indication: Cutaneous calcification
     Route: 048
  8. COLCHICINE [Suspect]
     Active Substance: COLCHICINE
     Indication: Cutaneous calcification
  9. AMITRIPTYLINE [Suspect]
     Active Substance: AMITRIPTYLINE
     Indication: Cutaneous calcification
  10. CELECOXIB [Suspect]
     Active Substance: CELECOXIB
     Indication: Cutaneous calcification
  11. METHOTREXATE [Concomitant]
     Active Substance: METHOTREXATE
     Indication: Eosinophilic fasciitis

REACTIONS (1)
  - Drug ineffective [Unknown]
